FAERS Safety Report 15048947 (Version 8)
Quarter: 2019Q2

REPORT INFORMATION
  Report Type: Report from Study
  Country: CA (occurrence: CA)
  Receive Date: 20180622
  Receipt Date: 20190501
  Transmission Date: 20190711
  Serious: Yes (Hospitalization, Other)
  Sender: FDA-Public Use
  Company Number: CA-ROCHE-2113831

PATIENT
  Age: 66 Year
  Sex: Male
  Weight: 93.2 kg

DRUGS (16)
  1. MORPHINE [Suspect]
     Active Substance: MORPHINE
     Indication: PRODUCT USED FOR UNKNOWN INDICATION
     Route: 065
  2. CRESTOR [Concomitant]
     Active Substance: ROSUVASTATIN CALCIUM
  3. CIPROFLOXACIN. [Concomitant]
     Active Substance: CIPROFLOXACIN
     Indication: DIVERTICULITIS
  4. ESBRIET [Suspect]
     Active Substance: PIRFENIDONE
     Route: 048
     Dates: start: 20180526
  5. ESBRIET [Suspect]
     Active Substance: PIRFENIDONE
     Route: 048
     Dates: start: 20180417
  6. ESBRIET [Suspect]
     Active Substance: PIRFENIDONE
     Dosage: ONGOING-YES
     Route: 048
     Dates: start: 20190130
  7. ESBRIET [Suspect]
     Active Substance: PIRFENIDONE
     Dosage: ONGOING-YES
     Route: 048
     Dates: start: 20190418
  8. ESBRIET [Suspect]
     Active Substance: PIRFENIDONE
     Indication: IDIOPATHIC PULMONARY FIBROSIS
     Dosage: ON HOLD
     Route: 048
     Dates: start: 20180403, end: 201805
  9. ESBRIET [Suspect]
     Active Substance: PIRFENIDONE
     Route: 048
     Dates: start: 20180410
  10. OXYCODONE [Suspect]
     Active Substance: OXYCODONE
     Indication: PRODUCT USED FOR UNKNOWN INDICATION
     Route: 065
  11. METRONIDAZOLE. [Concomitant]
     Active Substance: METRONIDAZOLE
     Indication: DIVERTICULITIS
  12. VENTOLIN [Concomitant]
     Active Substance: ALBUTEROL SULFATE
     Route: 065
  13. ESBRIET [Suspect]
     Active Substance: PIRFENIDONE
     Dosage: DRUG DOSE FIRST ADMINISTERED IS 534 MG MILLIGRAM
     Route: 048
     Dates: start: 20180410
  14. ESBRIET [Suspect]
     Active Substance: PIRFENIDONE
     Route: 048
     Dates: start: 20180604
  15. ESBRIET [Suspect]
     Active Substance: PIRFENIDONE
     Route: 048
     Dates: start: 20180609
  16. ESBRIET [Suspect]
     Active Substance: PIRFENIDONE
     Route: 048
     Dates: start: 20180602

REACTIONS (21)
  - Lung disorder [Unknown]
  - Abdominal pain upper [Unknown]
  - Asthenia [Unknown]
  - Dyspnoea [Unknown]
  - Diarrhoea [Not Recovered/Not Resolved]
  - Skin disorder [Unknown]
  - Hallucination [Unknown]
  - Dizziness [Recovering/Resolving]
  - Chest pain [Recovering/Resolving]
  - Ill-defined disorder [Unknown]
  - Depression [Unknown]
  - Pain [Not Recovered/Not Resolved]
  - Fatigue [Recovering/Resolving]
  - Gastrooesophageal reflux disease [Recovering/Resolving]
  - Nausea [Unknown]
  - Feeling hot [Unknown]
  - Chest discomfort [Unknown]
  - Procedural pain [Unknown]
  - Depression [Recovering/Resolving]
  - Fatigue [Not Recovered/Not Resolved]
  - Weight increased [Unknown]

NARRATIVE: CASE EVENT DATE: 20180403
